FAERS Safety Report 24161587 (Version 1)
Quarter: 2024Q3

REPORT INFORMATION
  Report Type: Spontaneous
  Country: IT (occurrence: IT)
  Receive Date: 20240801
  Receipt Date: 20240801
  Transmission Date: 20241017
  Serious: Yes (Hospitalization)
  Sender: NOVITIUM PHARMA
  Company Number: IT-NOVITIUMPHARMA-2024ITNVP01415

PATIENT
  Age: 34 Year
  Sex: Female

DRUGS (4)
  1. DIGOXIN [Suspect]
     Active Substance: DIGOXIN
     Indication: Atrial tachycardia
  2. ADENOSINE [Concomitant]
     Active Substance: ADENOSINE
     Indication: Atrial tachycardia
  3. FLECAINIDE [Concomitant]
     Active Substance: FLECAINIDE
     Indication: Atrial tachycardia
  4. METOPROLOL [Concomitant]
     Active Substance: METOPROLOL
     Indication: Atrial tachycardia

REACTIONS (2)
  - Therapy non-responder [Unknown]
  - Exposure during pregnancy [Unknown]
